FAERS Safety Report 4476451-6 (Version None)
Quarter: 2004Q4

REPORT INFORMATION
  Report Type: 
  Country: None (occurrence: None)
  Receive Date: 20041012
  Receipt Date: 20041007
  Transmission Date: 20050328
  Serious: Yes (Other)
  Sender: FDA-Public Use
  Company Number: MK200410-0077-1

PATIENT
  Age: 66 Year
  Sex: Female

DRUGS (2)
  1. OPTIMARK [Suspect]
     Indication: NUCLEAR MAGNETIC RESONANCE IMAGING
     Dosage: 19 CC, IV, ONCE
     Route: 042
     Dates: start: 20041006, end: 20041006
  2. BLOOD PRDESSURE MEDICATION [Concomitant]

REACTIONS (4)
  - ANXIETY [None]
  - CONFUSIONAL STATE [None]
  - POST PROCEDURAL COMPLICATION [None]
  - TRANSIENT ISCHAEMIC ATTACK [None]
